FAERS Safety Report 8362447 (Version 6)
Quarter: 2015Q2

REPORT INFORMATION
  Report Type: Report from Study
  Country: US (occurrence: US)
  Receive Date: 20120130
  Receipt Date: 20150427
  Transmission Date: 20150821
  Serious: Yes (Death, Hospitalization, Other)
  Sender: FDA-Public Use
  Company Number: US-ROCHE-1034531

PATIENT
  Sex: Male
  Weight: 81.27 kg

DRUGS (16)
  1. ZAROXOLYN [Concomitant]
     Active Substance: METOLAZONE
     Route: 048
  2. KYTRIL [Concomitant]
     Active Substance: GRANISETRON HYDROCHLORIDE
     Route: 042
  3. DECADRON [Concomitant]
     Active Substance: DEXAMETHASONE
     Route: 042
  4. DEPO-MEDROL [Concomitant]
     Active Substance: METHYLPREDNISOLONE ACETATE
     Route: 030
  5. RITUXAN [Suspect]
     Active Substance: RITUXIMAB
     Indication: VASCULITIS
     Route: 042
     Dates: start: 20061218, end: 20070814
  6. SOLU-MEDROL [Concomitant]
     Active Substance: METHYLPREDNISOLONE SODIUM SUCCINATE
     Route: 030
  7. SENOKOT [Concomitant]
     Active Substance: SENNOSIDES
     Dosage: 1 TAB DAILY
     Route: 048
  8. PREVACID [Concomitant]
     Active Substance: LANSOPRAZOLE
     Route: 048
  9. DECADRON [Concomitant]
     Active Substance: DEXAMETHASONE
     Route: 042
  10. TAGAMET [Concomitant]
     Active Substance: CIMETIDINE
     Route: 042
  11. COREG [Concomitant]
     Active Substance: CARVEDILOL
     Dosage: HALF TAB DAILY
     Route: 048
  12. PREDNISONE. [Concomitant]
     Active Substance: PREDNISONE
     Route: 048
  13. LASIX [Concomitant]
     Active Substance: FUROSEMIDE
     Route: 048
  14. DEPO-MEDROL [Concomitant]
     Active Substance: METHYLPREDNISOLONE ACETATE
     Route: 030
  15. PROZAC [Concomitant]
     Active Substance: FLUOXETINE HYDROCHLORIDE
     Route: 048
  16. BENADRYL [Concomitant]
     Active Substance: DIPHENHYDRAMINE HYDROCHLORIDE
     Route: 042

REACTIONS (17)
  - Cardiac failure congestive [Fatal]
  - Asthenia [Fatal]
  - Cholecystectomy [Unknown]
  - Dysphagia [Unknown]
  - Off label use [Unknown]
  - Vascular graft [Unknown]
  - Nausea [Unknown]
  - Pain [Unknown]
  - Coronary artery disease [Fatal]
  - Limb discomfort [Unknown]
  - Dyspnoea [Fatal]
  - Fatigue [Unknown]
  - Restlessness [Unknown]
  - Mitral valve incompetence [Unknown]
  - Depression [Unknown]
  - Peripheral arterial occlusive disease [Unknown]
  - Vomiting [Unknown]
